FAERS Safety Report 4415389-7 (Version None)
Quarter: 2004Q2

REPORT INFORMATION
  Report Type: 
  Country: None (occurrence: None)
  Receive Date: 20040630
  Receipt Date: 20031014
  Transmission Date: 20050107
  Serious: Yes (Other)
  Sender: FDA-Public Use
  Company Number: 2003037009

PATIENT
  Age: 14 Year
  Sex: Female
  Weight: 45.9 kg

DRUGS (11)
  1. ZOLOFT [Suspect]
     Indication: DEPRESSION
     Dosage: 150 MG (DAILY), ORAL
     Route: 048
     Dates: end: 20030830
  2. ZOLOFT [Suspect]
     Indication: FLASHBACK
     Dosage: 150 MG (DAILY), ORAL
     Route: 048
     Dates: end: 20030830
  3. EFAVIRENZ (EFAVIRENZ) [Concomitant]
     Indication: HIV TEST POSITIVE
     Dosage: 600 MG (DAILY), ORAL
     Route: 048
     Dates: start: 20030701, end: 20030902
  4. TOCOPHEROL CONCENTRATE CAP [Concomitant]
  5. STAVUDINE (STAVUDINE) [Concomitant]
  6. ZALCITABINE (ZALCITABINE) [Concomitant]
  7. AMPRENAVIR (AMPRENAVIR) [Concomitant]
  8. TENOFOVIR DISOPROXIL FUMARATE (TENOFOVIR DISOPROXIL FUMARATE) [Concomitant]
  9. LAMIVUDINE (LAMIVUDINE) [Concomitant]
  10. ABACAVIR SULFATE (ABACAVIR SULFATE) [Concomitant]
  11. MULTIVITAMIN [Concomitant]

REACTIONS (7)
  - CONFUSIONAL STATE [None]
  - CONVULSION [None]
  - DRUG INTERACTION [None]
  - DYSKINESIA [None]
  - ENCEPHALOPATHY [None]
  - STARING [None]
  - UNEVALUABLE EVENT [None]
